FAERS Safety Report 20661777 (Version 1)
Quarter: 2022Q2

REPORT INFORMATION
  Report Type: Other
  Country: CA (occurrence: CA)
  Receive Date: 20220401
  Receipt Date: 20220401
  Transmission Date: 20220721
  Serious: Yes (Other)
  Sender: FDA-Public Use
  Company Number: CA-CELLTRION INC.-2022CA003690

PATIENT

DRUGS (3)
  1. TRUXIMA [Suspect]
     Active Substance: RITUXIMAB-ABBS
     Indication: Rheumatoid arthritis
     Dosage: 1000.0 MILLIGRAM
     Route: 042
  2. TRUXIMA [Suspect]
     Active Substance: RITUXIMAB-ABBS
     Dosage: 1000.0 MILLIGRAM
     Route: 042
  3. TRUXIMA [Suspect]
     Active Substance: RITUXIMAB-ABBS
     Dosage: 1000.0 MILLIGRAM
     Route: 042

REACTIONS (5)
  - Interstitial lung disease [Unknown]
  - Therapy cessation [Unknown]
  - Blood pressure abnormal [Unknown]
  - Circumstance or information capable of leading to medication error [Unknown]
  - Intentional dose omission [Unknown]
